FAERS Safety Report 9517323 (Version 1)
Quarter: 2013Q1

REPORT INFORMATION
  Report Type: Spontaneous
  Country: US (occurrence: None)
  Receive Date: 20130305
  Receipt Date: 20130305
  Transmission Date: 20140127
  Serious: Yes (Hospitalization)
  Sender: FDA-Public Use
  Company Number: 163-21880-12122058

PATIENT
  Age: 44 Year
  Sex: Female

DRUGS (7)
  1. REVLIMID (LENALIDOMIDE) (CAPSULES) [Suspect]
     Indication: PLASMA CELL MYELOMA
     Dosage: 14 IN 14 D
     Route: 048
     Dates: start: 20120511
  2. DEXAMETHASONE (DEXAMETHASONE) [Concomitant]
  3. FLEXERIL (CYCLOBENZAPINE) [Concomitant]
  4. HYDROMORPHONE HCL (HYDROMORPHONE HYDROCHLORIDE) [Concomitant]
  5. PROCHLORPERAZINE MALEATE (PROCHLORPERAZINE MALEATE) (UNKNOWN) [Concomitant]
  6. STOOL SOFTENER (DOCUSATE SODIUM) (UNKNOWN) [Concomitant]
  7. VELCADE (BORTEZOMIDE) [Concomitant]

REACTIONS (1)
  - Rash generalised [None]
